FAERS Safety Report 25651578 (Version 1)
Quarter: 2025Q3

REPORT INFORMATION
  Report Type: Spontaneous
  Country: IN (occurrence: IN)
  Receive Date: 20250806
  Receipt Date: 20250806
  Transmission Date: 20251020
  Serious: Yes (Hospitalization)
  Sender: Alora Pharma
  Company Number: IN-AVION PHARMACEUTICALS-2025ALO02389

PATIENT
  Age: 4 Year
  Sex: Female

DRUGS (1)
  1. PONSTEL [Suspect]
     Active Substance: MEFENAMIC ACID
     Indication: Pyrexia
     Dosage: 250 MG, 4X/DAY [4 DOSES 6 HOURS APART]

REACTIONS (1)
  - Nephrotic syndrome [Recovered/Resolved]
